FAERS Safety Report 23389307 (Version 1)
Quarter: 2024Q1

REPORT INFORMATION
  Report Type: Spontaneous
  Country: US (occurrence: US)
  Receive Date: 20240110
  Receipt Date: 20240110
  Transmission Date: 20240409
  Serious: No
  Sender: FDA-Public Use
  Company Number: US-REGENERON PHARMACEUTICALS, INC.-2023-022131

PATIENT
  Age: 80 Year
  Sex: Female

DRUGS (2)
  1. EYLEA [Suspect]
     Active Substance: AFLIBERCEPT
     Indication: Diabetic retinal oedema
     Dosage: UNK, ONCE A MONTH; INTO ONE EYE (UNSPECIFIED)
     Dates: start: 2022
  2. EYLEA [Suspect]
     Active Substance: AFLIBERCEPT
     Dosage: UNK, ONCE A MONTH; INTO BOTH EYES

REACTIONS (3)
  - Visual impairment [Unknown]
  - Alopecia [Unknown]
  - Hair colour changes [Unknown]
